FAERS Safety Report 16461747 (Version 1)
Quarter: 2019Q2

REPORT INFORMATION
  Report Type: Spontaneous
  Country: US (occurrence: US)
  Receive Date: 20190621
  Receipt Date: 20190621
  Transmission Date: 20190711
  Serious: No
  Sender: FDA-Public Use
  Company Number: US-TEVA-2019-US-1063336

PATIENT

DRUGS (1)
  1. GENERIC BRAND OF VALIUM [Suspect]
     Active Substance: DIAZEPAM
     Indication: ANXIETY
     Dosage: ONE-HALF TABLET OR LESS DAILY

REACTIONS (1)
  - Headache [Unknown]
